FAERS Safety Report 10414161 (Version 1)
Quarter: 2014Q3

REPORT INFORMATION
  Report Type: Spontaneous
  Country: JP (occurrence: None)
  Receive Date: 20140826
  Receipt Date: 20140826
  Transmission Date: 20150326
  Serious: Yes (Hospitalization, Other)
  Sender: FDA-Public Use
  Company Number: AXC-2014-000524

PATIENT
  Age: 9 Year
  Sex: Female
  Weight: 19 kg

DRUGS (3)
  1. VITAMIN K /00032401/ (PHYTOMENADIONE) [Concomitant]
  2. URSODEOXYCHOLIC ACID (URSODEOXYCHOLIC ACID) UNKNOWN) [Suspect]
     Active Substance: URSODIOL
     Indication: CONGENITAL ABSENCE OF BILE DUCTS
  3. VITAMIN D /00107901/ (ERGOCALCIFEROL) [Concomitant]

REACTIONS (14)
  - Hyperbilirubinaemia [None]
  - Arthralgia [None]
  - Femur fracture [None]
  - Anaemia [None]
  - Blood cholesterol increased [None]
  - Blood alkaline phosphatase increased [None]
  - Alanine aminotransferase increased [None]
  - Pathological fracture [None]
  - Aspartate aminotransferase increased [None]
  - Hepatic function abnormal [None]
  - Abasia [None]
  - Condition aggravated [None]
  - Malnutrition [None]
  - Gamma-glutamyltransferase increased [None]
